FAERS Safety Report 10685027 (Version 1)
Quarter: 2014Q4

REPORT INFORMATION
  Report Type: Spontaneous
  Country: US (occurrence: None)
  Receive Date: 20141230
  Receipt Date: 20141230
  Transmission Date: 20150529
  Serious: Yes (Disabling)
  Sender: FDA-Public Use
  Company Number: None

PATIENT
  Age: 62 Year
  Sex: Male
  Weight: 71.22 kg

DRUGS (1)
  1. PENICILLIN [Suspect]
     Active Substance: PENICILLIN
     Indication: TOOTH INFECTION
     Dosage: 1 PILL  FOUR TIMES DAILY  --
     Dates: start: 20141223, end: 20141224

REACTIONS (4)
  - Dysphagia [None]
  - Product substitution issue [None]
  - Foaming at mouth [None]
  - Gastrointestinal disorder [None]

NARRATIVE: CASE EVENT DATE: 20141224
